FAERS Safety Report 20134778 (Version 1)
Quarter: 2021Q4

REPORT INFORMATION
  Report Type: Spontaneous
  Country: US (occurrence: None)
  Receive Date: 20211130
  Receipt Date: 20211130
  Transmission Date: 20220303
  Serious: Yes (Death)
  Sender: FDA-Public Use
  Company Number: None

PATIENT
  Age: 73 Year
  Sex: Female

DRUGS (1)
  1. BOTOX COSMETIC [Suspect]
     Active Substance: ONABOTULINUMTOXINA
     Dosage: OTHER QUANTITY : 200 UNITS;?OTHER FREQUENCY : UNKNOWN;?
     Route: 030
     Dates: start: 20200220, end: 20211114

REACTIONS (1)
  - Death [None]

NARRATIVE: CASE EVENT DATE: 20211114
